FAERS Safety Report 24825101 (Version 1)
Quarter: 2025Q1

REPORT INFORMATION
  Report Type: Spontaneous
  Country: US (occurrence: None)
  Receive Date: 20250108
  Receipt Date: 20250108
  Transmission Date: 20250408
  Serious: Yes (Other)
  Sender: FDA-CTU
  Company Number: None

PATIENT
  Age: 62 Year
  Sex: Female
  Weight: 67.5 kg

DRUGS (10)
  1. RECLAST [Suspect]
     Active Substance: ZOLEDRONIC ACID
     Indication: Osteoporosis
     Route: 042
     Dates: start: 20241231, end: 20241231
  2. PANTOPRAZOLE [Concomitant]
     Active Substance: PANTOPRAZOLE
  3. RESTASIS [Concomitant]
     Active Substance: CYCLOSPORINE
  4. RYALTRIS [Concomitant]
     Active Substance: MOMETASONE FUROATE MONOHYDRATE\OLOPATADINE HYDROCHLORIDE
  5. XYZAL [Concomitant]
     Active Substance: LEVOCETIRIZINE DIHYDROCHLORIDE
  6. CALCIUM [Concomitant]
     Active Substance: CALCIUM
  7. VITAMINS [Concomitant]
     Active Substance: VITAMINS
  8. OCUVITE [Concomitant]
     Active Substance: VITAMINS
  9. DIETARY SUPPLEMENT [Concomitant]
     Active Substance: DIETARY SUPPLEMENT
  10. Move Free Joint supplement [Concomitant]

REACTIONS (11)
  - Adverse drug reaction [None]
  - Pain in extremity [None]
  - Pain in extremity [None]
  - Pain [None]
  - Chills [None]
  - Pyrexia [None]
  - Neck pain [None]
  - Arthralgia [None]
  - Nausea [None]
  - Retching [None]
  - Hyperhidrosis [None]

NARRATIVE: CASE EVENT DATE: 20241231
